FAERS Safety Report 19517296 (Version 4)
Quarter: 2025Q1

REPORT INFORMATION
  Report Type: Spontaneous
  Country: US (occurrence: US)
  Receive Date: 20210712
  Receipt Date: 20250211
  Transmission Date: 20250408
  Serious: No
  Sender: BRISTOL-MYERS SQUIBB COMPANY
  Company Number: US-BRISTOL-MYERS SQUIBB COMPANY-BMS-2021-064560

PATIENT
  Age: 80 Year
  Sex: Female

DRUGS (2)
  1. SPRYCEL [Suspect]
     Active Substance: DASATINIB
     Indication: Chronic myeloid leukaemia
     Dosage: 100 MILLIGRAM, QD
     Route: 048
     Dates: start: 20180606
  2. SPRYCEL [Suspect]
     Active Substance: DASATINIB
     Route: 048
     Dates: start: 20200711

REACTIONS (6)
  - Peripheral swelling [Unknown]
  - Vein disorder [Unknown]
  - Dyspnoea [Unknown]
  - Paraesthesia [Unknown]
  - Pain of skin [Unknown]
  - Cardiac murmur [Unknown]
